FAERS Safety Report 4758763-1 (Version None)
Quarter: 2005Q3

REPORT INFORMATION
  Report Type: 
  Country: None (occurrence: None)
  Receive Date: 20050901
  Receipt Date: 20050819
  Transmission Date: 20060218
  Serious: Yes (Hospitalization)
  Sender: FDA-Public Use
  Company Number: 2005AP04545

PATIENT
  Sex: Male

DRUGS (3)
  1. XYLOCAINE W/ EPINEPHRINE [Suspect]
     Indication: INFILTRATION ANAESTHESIA
     Route: 042
     Dates: start: 20050811, end: 20050811
  2. NU-LOTAN [Concomitant]
     Route: 048
  3. NORVASC [Concomitant]
     Route: 048

REACTIONS (1)
  - INTRAOCULAR PRESSURE INCREASED [None]
